FAERS Safety Report 4537987-2 (Version None)
Quarter: 2004Q4

REPORT INFORMATION
  Report Type: 
  Country: None (occurrence: None)
  Receive Date: 20041221
  Receipt Date: 20030624
  Transmission Date: 20050328
  Serious: Yes (Other)
  Sender: FDA-Public Use
  Company Number: 200410515BBE

PATIENT
  Sex: Male

DRUGS (10)
  1. HYPRHO-D [Suspect]
  2. INJECTABLE GLOBULIN (JOHNSON AND JOHNSON) (IMMUNOGLOBULINS) [Suspect]
     Route: 064
  3. INJECTABLE GLOBULIN (ORTHOCLINICAL DIAGNOSTICS) (IMMUNOGLOBULINS) [Suspect]
     Route: 064
  4. INJECTABLE GLOBULIN (AVENTIS PASTEUR) IMMUNOGLOBULINS) [Suspect]
     Route: 064
  5. INJECTABLE GLOBULIN (DOW AGRO SCIENCES) IMMUNOGLOBULINS) [Suspect]
     Route: 064
  6. INJECTABLE GLOBULIN (DOW CHEMICAL SCIENCES) IMMUNOGLOBULINS) [Suspect]
     Route: 064
  7. INJECTABLE GLOBULIN (GLAXOSMITHKLINE) IMMUNOGLOBULINS) [Suspect]
     Route: 064
  8. INJECTABLE GLOBULIN (ELI LILLY) IMMUNOGLOBULINS) [Suspect]
     Route: 064
  9. INJECTABLE GLOBULIN (MERCK) IMMUNOGLOBULINS) [Suspect]
     Route: 064
  10. INJECTABLE GLOBULIN (WYETH) IMMUNOGLOBULINS) [Suspect]
     Route: 064

REACTIONS (3)
  - DRUG EXPOSURE DURING PREGNANCY [None]
  - METAL POISONING [None]
  - NEUROTOXICITY [None]
